FAERS Safety Report 5686689-8 (Version None)
Quarter: 2008Q1

REPORT INFORMATION
  Report Type: 
  Country: None (occurrence: None)
  Receive Date: 20080328
  Receipt Date: 20070511
  Transmission Date: 20080703
  Serious: No
  Sender: FDA-Public Use
  Company Number: US-BAYER-US-2007-016978

PATIENT
  Age: 43 Year
  Sex: Female
  Weight: 73 kg

DRUGS (2)
  1. MIRENA [Suspect]
     Indication: CONTRACEPTION
     Route: 015
     Dates: start: 20061101
  2. SYNTHROID [Concomitant]
     Dosage: UNIT DOSE: 0.075 MG
     Route: 048

REACTIONS (4)
  - ABDOMINAL PAIN [None]
  - IUCD COMPLICATION [None]
  - MENORRHAGIA [None]
  - OVARIAN CYST [None]
